FAERS Safety Report 5787524-X (Version None)
Quarter: 2008Q2

REPORT INFORMATION
  Report Type: 
  Country: None (occurrence: None)
  Receive Date: 20080625
  Receipt Date: 20080613
  Transmission Date: 20081010
  Serious: Yes (Hospitalization)
  Sender: FDA-Public Use
  Company Number: US-ROCHE-492210

PATIENT
  Sex: Male
  Weight: 63 kg

DRUGS (13)
  1. MYCOPHENOLATE MOFETIL [Suspect]
     Dosage: DOSAGE FORM REPORTED AS PILL.
     Route: 048
     Dates: start: 20070118
  2. SIROLIMUS [Suspect]
     Dosage: DOSAGE FORM REPORTED AS PILL.
     Route: 048
     Dates: start: 20070125, end: 20070410
  3. SIROLIMUS [Suspect]
     Dosage: PERMANENTLY DISCONTINUED
     Route: 048
     Dates: start: 20070412, end: 20070427
  4. PREDNISONE [Suspect]
     Dosage: PERMANENTLY DISCONTINUED.DOSAGE FORM REPORTED AS PILL.
     Route: 065
     Dates: start: 20061120, end: 20070408
  5. BACTRIM DS [Concomitant]
     Dates: start: 20061120
  6. BACTRIM DS [Concomitant]
     Dates: start: 20061120
  7. MAGNESIUM PROTEIN COMPLEX [Concomitant]
     Dates: start: 20061120
  8. MAGNESIUM PROTEIN COMPLEX [Concomitant]
     Dates: start: 20061120
  9. VALCYTE [Concomitant]
     Dates: start: 20061201
  10. PREVACID [Concomitant]
     Dates: start: 20061120
  11. NPH ILETIN II [Concomitant]
     Dates: start: 20061201
  12. NOVOLOG [Concomitant]
     Dosage: REPORTED AS NOVOLOG INSULIN.
     Dates: start: 20061201
  13. MULTI-VITAMIN [Concomitant]
     Dates: start: 20061120

REACTIONS (1)
  - HEPATITIS C [None]
